FAERS Safety Report 16502817 (Version 1)
Quarter: 2019Q3

REPORT INFORMATION
  Report Type: Spontaneous
  Country: FR (occurrence: FR)
  Receive Date: 20190701
  Receipt Date: 20190701
  Transmission Date: 20191004
  Serious: Yes (Disabling, Congenital Anomaly)
  Sender: FDA-Public Use
  Company Number: FR-MYLANLABS-98100004

PATIENT
  Age: 29 Year
  Sex: Female

DRUGS (8)
  1. VIRLIX [Concomitant]
     Active Substance: CETIRIZINE HYDROCHLORIDE
     Dosage: UNK
     Dates: end: 199709
  2. LOCABIOTAL [Concomitant]
     Active Substance: FUSAFUNGINE
     Dosage: UNK
  3. BECLOMET                           /00212602/ [Concomitant]
     Dosage: UNK
     Dates: start: 19970702, end: 19971030
  4. GAVISCON                           /00237601/ [Concomitant]
     Active Substance: ALUMINUM HYDROXIDE\MAGNESIUM CARBONATE
     Dosage: UNK
     Dates: end: 199709
  5. ALLERGODIL (AZELASTINE HCL) NASAL SPRAY, 137 MCG [Suspect]
     Active Substance: AZELASTINE HYDROCHLORIDE
     Indication: ASTHMA
     Dosage: DATA NA
     Route: 045
  6. TOPLEXIL                           /00111401/ [Concomitant]
     Active Substance: ACETAMINOPHEN\GUAIFENESIN\OXOMEMAZINE\SODIUM BENZOATE
     Dosage: UNK
     Dates: start: 19971126, end: 19971203
  7. CLAMOXYL                           /00249602/ [Concomitant]
     Active Substance: AMOXICILLIN
     Dosage: UNK
     Dates: start: 19971126, end: 19971203
  8. FORADIL [Concomitant]
     Active Substance: FORMOTEROL FUMARATE
     Dosage: UNK
     Dates: start: 19970702, end: 19971030

REACTIONS (2)
  - Multiple congenital abnormalities [Not Recovered/Not Resolved]
  - Maternal exposure during pregnancy [Recovered/Resolved]

NARRATIVE: CASE EVENT DATE: 19980614
